FAERS Safety Report 26184503 (Version 1)
Quarter: 2025Q4

REPORT INFORMATION
  Report Type: Spontaneous
  Country: US (occurrence: US)
  Receive Date: 20251222
  Receipt Date: 20251222
  Transmission Date: 20260118
  Serious: No
  Sender: SPRINGWORKS THERAPEUTIC
  Company Number: US-SPRINGWORKS THERAPEUTICS-SW-003607

PATIENT
  Age: 62 Year

DRUGS (1)
  1. OGSIVEO [Suspect]
     Active Substance: NIROGACESTAT HYDROBROMIDE
     Indication: Product used for unknown indication

REACTIONS (4)
  - Bone pain [Unknown]
  - Photopsia [Recovered/Resolved]
  - Hip arthroplasty [Unknown]
  - Neoplasm progression [Unknown]
